FAERS Safety Report 9930041 (Version 1)
Quarter: 2014Q1

REPORT INFORMATION
  Report Type: Spontaneous
  Country: US (occurrence: US)
  Receive Date: 20140227
  Receipt Date: 20140227
  Transmission Date: 20141002
  Serious: No
  Sender: FDA-Public Use
  Company Number: US-AMGEN-USASP2013072638

PATIENT
  Age: 58 Year
  Sex: Female
  Weight: 74.83 kg

DRUGS (11)
  1. ENBREL [Suspect]
     Indication: RHEUMATOID ARTHRITIS
     Dosage: 50 MG, QWK
     Route: 058
     Dates: start: 2006
  2. PREMPRO [Concomitant]
     Dosage: 0.3-1.5, UNK
  3. METHOTREXATE [Concomitant]
     Dosage: 2.5 MG, UNK
  4. LIPITOR [Concomitant]
     Dosage: 40 MG, UNK
  5. LYRICA [Concomitant]
     Dosage: 25 MG, UNK
  6. SYNTHROID [Concomitant]
     Dosage: 25 MUG, UNK
  7. ALLEGRA [Concomitant]
     Dosage: 180 MG, UNK
  8. TRAMADOL HCL [Concomitant]
     Dosage: 50 MG, UNK
  9. CALCIUM D                          /00944201/ [Concomitant]
     Dosage: UNK
  10. STOOL SOFTENER [Concomitant]
     Dosage: 50 MG, UNK
  11. MULTIVITAMINS, PLAIN [Concomitant]
     Dosage: UNK

REACTIONS (1)
  - Drug ineffective [Unknown]
